FAERS Safety Report 8553341 (Version 4)
Quarter: 2015Q1

REPORT INFORMATION
  Report Type: Spontaneous
  Country: JP (occurrence: JP)
  Receive Date: 20120509
  Receipt Date: 20150324
  Transmission Date: 20150721
  Serious: Yes (Other)
  Sender: FDA-Public Use
  Company Number: JP-PFIZER INC-2012111243

PATIENT
  Age: 35 Year
  Sex: Female
  Weight: 44 kg

DRUGS (2)
  1. SUTENT [Suspect]
     Active Substance: SUNITINIB MALATE
     Dosage: UNK
     Dates: end: 20120705
  2. SUTENT [Suspect]
     Active Substance: SUNITINIB MALATE
     Indication: GASTROINTESTINAL STROMAL TUMOUR
     Dosage: UNK
     Route: 048
     Dates: start: 20111013, end: 20120305

REACTIONS (3)
  - Macular oedema [Recovering/Resolving]
  - Optic neuropathy [Recovering/Resolving]
  - Papilloedema [Unknown]

NARRATIVE: CASE EVENT DATE: 201203
